FAERS Safety Report 6709415-X (Version None)
Quarter: 2010Q2

REPORT INFORMATION
  Report Type: 
  Country: None (occurrence: None)
  Receive Date: 20100504
  Receipt Date: 20100422
  Transmission Date: 20101027
  Serious: Yes (Other)
  Sender: FDA-Public Use
  Company Number: FR-PFIZER INC-2010050899

PATIENT
  Age: 76 Year
  Sex: Male

DRUGS (9)
  1. CLINDAMYCIN HCL [Suspect]
     Indication: ARTHRITIS INFECTIVE
     Dosage: UNK
     Route: 048
     Dates: start: 20090410, end: 20090506
  2. OFLOCET [Suspect]
     Indication: ARTHRITIS INFECTIVE
     Dosage: UNK
     Route: 048
     Dates: start: 20090401, end: 20090414
  3. BRISTOPEN [Concomitant]
     Indication: ARTHRITIS INFECTIVE
     Dosage: UNK
     Route: 048
     Dates: start: 20090401, end: 20090410
  4. AVANDIA [Concomitant]
     Route: 048
  5. AMAREL [Concomitant]
     Route: 048
  6. FELODIPINE [Concomitant]
     Route: 048
  7. IMOVANE [Concomitant]
     Route: 048
  8. BIPRETERAX [Concomitant]
     Route: 048
  9. BIMATOPROST AND TIMOLOL MALEATE [Concomitant]
     Route: 003

REACTIONS (1)
  - TENDON RUPTURE [None]
